FAERS Safety Report 5589190-5 (Version None)
Quarter: 2008Q1

REPORT INFORMATION
  Report Type: 
  Country: None (occurrence: None)
  Receive Date: 20080110
  Receipt Date: 20080110
  Transmission Date: 20080703
  Serious: Yes (Hospitalization)
  Sender: FDA-Public Use
  Company Number: None

PATIENT
  Age: 53 Year
  Sex: Male

DRUGS (2)
  1. IMMUNE GLOBULIN INTRAVENOUS (HUMAN) [Suspect]
     Indication: MYASTHENIA GRAVIS
     Dosage: IV DRIP
     Route: 041
     Dates: start: 20060321, end: 20060321
  2. MESTINON [Concomitant]

REACTIONS (2)
  - INFUSION RELATED REACTION [None]
  - MENINGITIS ASEPTIC [None]
